FAERS Safety Report 8278659 (Version 4)
Quarter: 2012Q4

REPORT INFORMATION
  Report Type: 
  Country: GB (occurrence: GB)
  Receive Date: 20111207
  Receipt Date: 20121018
  Transmission Date: 20130627
  Serious: Yes (Death, Hospitalization)
  Sender: FDA-Public Use
  Company Number: IT-GILEAD-2011-0047671

PATIENT
  Age: 91 Year
  Sex: Male

DRUGS (14)
  1. RANOLAZINE [Suspect]
     Indication: ANGINA PECTORIS
     Dosage: 375 mg, BID
     Route: 048
     Dates: start: 20111031
  2. DILTIAZEM [Concomitant]
     Indication: ANGINA PECTORIS
     Dosage: 240 mg, UNK
     Route: 048
     Dates: start: 20111103, end: 20111105
  3. NICORANDIL [Concomitant]
     Indication: ANGINA PECTORIS
     Dosage: 60 mg, UNK
     Route: 048
     Dates: start: 20111026
  4. CLOPIDOGREL [Concomitant]
     Indication: MYOCARDIAL INFARCTION
     Dosage: 75 mg, UNK
     Route: 048
     Dates: start: 20111010
  5. ISOSORBIDE [Concomitant]
     Indication: ANGINA PECTORIS
     Dosage: 120 mg, UNK
     Route: 048
     Dates: start: 20111011
  6. SIMVASTATIN [Concomitant]
     Indication: HYPERCHOLESTEROLAEMIA
     Dosage: 40 mg, UNK
     Route: 048
     Dates: start: 20111110
  7. ASPIRIN [Concomitant]
     Indication: MYOCARDIAL INFARCTION
     Dosage: 75 mg, QD
     Route: 048
     Dates: start: 20111010
  8. AMLODIPINE [Concomitant]
     Indication: HYPERTENSION
     Dosage: 5 mg, UNK
     Route: 048
     Dates: start: 20111104
  9. LANSOPRAZOLE [Concomitant]
     Indication: PROPHYLAXIS AGAINST GASTROINTESTINAL ULCER
     Dosage: 30 mg, UNK
     Route: 048
     Dates: start: 20111010
  10. LACTULOSE [Concomitant]
     Indication: CONSTIPATION
     Dosage: 30 ml, UNK
     Route: 048
     Dates: start: 20111010
  11. SENNA ALEXANDRINA [Concomitant]
     Indication: CONSTIPATION
     Dosage: UNK
     Route: 048
     Dates: start: 20111017
  12. PARACETAMOL [Concomitant]
     Indication: PAIN
     Dosage: 4 g, UNK
     Route: 048
     Dates: start: 20111024
  13. FERROUS SULPHATE                   /00023503/ [Concomitant]
     Indication: ANAEMIA
     Dosage: 400 mg, UNK
     Route: 048
     Dates: start: 20111027
  14. FORTISIP [Concomitant]
     Indication: MEDICAL DIET
     Dosage: UNK
     Route: 048
     Dates: start: 20111107

REACTIONS (5)
  - Acute myocardial infarction [Fatal]
  - Chest pain [Fatal]
  - Orthostatic hypotension [Unknown]
  - Dizziness [Unknown]
  - Fall [Unknown]
